FAERS Safety Report 16385452 (Version 5)
Quarter: 2022Q2

REPORT INFORMATION
  Report Type: Report from Study
  Country: US (occurrence: US)
  Receive Date: 20190603
  Receipt Date: 20220516
  Transmission Date: 20220720
  Serious: Yes (Other)
  Sender: FDA-Public Use
  Company Number: PHEH2019US023247

PATIENT
  Sex: Male

DRUGS (1)
  1. ENTRESTO [Suspect]
     Active Substance: SACUBITRIL\VALSARTAN
     Indication: Cardiac failure congestive
     Dosage: UNK
     Route: 048

REACTIONS (7)
  - Diabetes mellitus [Unknown]
  - Nephrolithiasis [Unknown]
  - Cataract [Unknown]
  - Micturition frequency decreased [Unknown]
  - Weight fluctuation [Unknown]
  - Fluid retention [Unknown]
  - Oedema [Unknown]
